FAERS Safety Report 4768337-4 (Version None)
Quarter: 2005Q3

REPORT INFORMATION
  Report Type: 
  Country: None (occurrence: None)
  Receive Date: 20050906
  Receipt Date: 20050729
  Transmission Date: 20060218
  Serious: No
  Sender: FDA-Public Use
  Company Number: 2005-BP-12965BP

PATIENT
  Sex: Female

DRUGS (3)
  1. SPIRIVA [Suspect]
     Indication: DYSPNOEA
     Dosage: 18 MCG (18 MCG, QD), IH
     Route: 055
     Dates: start: 20050627, end: 20050629
  2. SPIRIVA [Suspect]
     Indication: THROAT TIGHTNESS
     Dosage: 18 MCG (18 MCG, QD), IH
     Route: 055
     Dates: start: 20050627, end: 20050629
  3. SPIRIVA [Suspect]

REACTIONS (7)
  - CHEST DISCOMFORT [None]
  - CHEST PAIN [None]
  - DYSPHAGIA [None]
  - DYSPNOEA [None]
  - NASAL CONGESTION [None]
  - RESTLESSNESS [None]
  - TACHYCARDIA [None]
